FAERS Safety Report 7906498-6 (Version None)
Quarter: 2011Q4

REPORT INFORMATION
  Report Type: 
  Country: None (occurrence: None)
  Receive Date: 20111110
  Receipt Date: 20111102
  Transmission Date: 20120403
  Serious: Yes (Hospitalization, Other)
  Sender: FDA-Public Use
  Company Number: US-JNJFOC-20111101491

PATIENT
  Sex: Female
  Weight: 81.19 kg

DRUGS (6)
  1. FENTANYL-100 [Suspect]
     Indication: MULTIPLE SCLEROSIS
     Route: 062
     Dates: start: 20101101, end: 20110101
  2. FENTANYL-100 [Suspect]
     Route: 062
     Dates: start: 20110101, end: 20110101
  3. DURAGESIC-100 [Suspect]
     Indication: MULTIPLE SCLEROSIS
     Route: 062
     Dates: start: 20110901
  4. DURAGESIC-100 [Suspect]
     Route: 062
     Dates: start: 20110101, end: 20110901
  5. CLONAZEPAM [Concomitant]
     Indication: MUSCLE SPASMS
     Route: 048
     Dates: start: 20060101
  6. AMITRIPTYLINE HCL [Concomitant]
     Indication: SLEEP DISORDER
     Route: 065
     Dates: start: 20110601

REACTIONS (5)
  - PANCREATITIS ACUTE [None]
  - DRUG EFFECT DECREASED [None]
  - PRODUCT ADHESION ISSUE [None]
  - STAPHYLOCOCCAL INFECTION [None]
  - CONDITION AGGRAVATED [None]
